FAERS Safety Report 10729813 (Version 1)
Quarter: 2015Q1

REPORT INFORMATION
  Report Type: Spontaneous
  Country: US (occurrence: US)
  Receive Date: 20150122
  Receipt Date: 20150122
  Transmission Date: 20150721
  Serious: Yes (Other)
  Sender: FDA-Public Use
  Company Number: US-ELI_LILLY_AND_COMPANY-US201501004613

PATIENT
  Age: 63 Year
  Sex: Male

DRUGS (1)
  1. CYRAMZA [Suspect]
     Active Substance: RAMUCIRUMAB
     Indication: OESOPHAGEAL CANCER METASTATIC
     Dosage: 8 MG/KG, CYCLICAL
     Route: 065
     Dates: start: 20141229

REACTIONS (1)
  - Neutrophil count decreased [Unknown]
